FAERS Safety Report 15156561 (Version 2)
Quarter: 2019Q1

REPORT INFORMATION
  Report Type: Spontaneous
  Country: US (occurrence: US)
  Receive Date: 20180717
  Receipt Date: 20190227
  Transmission Date: 20190417
  Serious: No
  Sender: FDA-Public Use
  Company Number: US-BAUSCH-BL-2017-030267

PATIENT
  Sex: Female
  Weight: 104.42 kg

DRUGS (2)
  1. XIFAXAN [Suspect]
     Active Substance: RIFAXIMIN
     Route: 048
     Dates: start: 201709, end: 20171015
  2. XIFAXAN [Suspect]
     Active Substance: RIFAXIMIN
     Indication: IRRITABLE BOWEL SYNDROME
     Route: 048
     Dates: start: 201610

REACTIONS (3)
  - Drug ineffective [Unknown]
  - Therapy cessation [Unknown]
  - Inability to afford medication [Unknown]

NARRATIVE: CASE EVENT DATE: 2016
